FAERS Safety Report 14061667 (Version 2)
Quarter: 2019Q3

REPORT INFORMATION
  Report Type: Other
  Country: US (occurrence: US)
  Receive Date: 20171009
  Receipt Date: 20190726
  Transmission Date: 20191004
  Serious: Yes (Death, Other)
  Sender: FDA-Public Use
  Company Number: US-VISTAPHARM, INC.-VER201709-000775

PATIENT
  Age: 2 Day
  Sex: Male
  Weight: 3.5 kg

DRUGS (2)
  1. MORPHINE [Suspect]
     Active Substance: MORPHINE
     Indication: SEDATION
  2. MORPHINE [Suspect]
     Active Substance: MORPHINE
     Indication: PAIN MANAGEMENT
     Dosage: UNKNOWN

REACTIONS (10)
  - Multiple organ dysfunction syndrome [Fatal]
  - Systemic mastocytosis [Unknown]
  - Coagulopathy [Unknown]
  - Hepatosplenomegaly [Unknown]
  - Respiratory distress [Unknown]
  - Condition aggravated [Unknown]
  - Hypotension [Unknown]
  - Lymphadenopathy [Unknown]
  - Pulmonary hypertension [Unknown]
  - General physical health deterioration [Unknown]
